FAERS Safety Report 16664498 (Version 1)
Quarter: 2019Q3

REPORT INFORMATION
  Report Type: Report from Study
  Country: US (occurrence: US)
  Receive Date: 20190802
  Receipt Date: 20190802
  Transmission Date: 20191004
  Serious: No
  Sender: FDA-Public Use
  Company Number: PHEH2019US031776

PATIENT
  Age: 62 Year
  Sex: Female

DRUGS (1)
  1. GLATOPA [Suspect]
     Active Substance: GLATIRAMER ACETATE
     Indication: MULTIPLE SCLEROSIS
     Dosage: 40 MG, QOD
     Route: 058
     Dates: start: 20190724

REACTIONS (5)
  - Feeling cold [Unknown]
  - Muscle spasms [Unknown]
  - Dizziness [Unknown]
  - Chills [Unknown]
  - Bruxism [Unknown]

NARRATIVE: CASE EVENT DATE: 20190724
